FAERS Safety Report 5304386-5 (Version None)
Quarter: 2007Q2

REPORT INFORMATION
  Report Type: 
  Country: None (occurrence: None)
  Receive Date: 20070419
  Receipt Date: 20070419
  Transmission Date: 20071010
  Serious: Yes (Death)
  Sender: FDA-Public Use
  Company Number: None

PATIENT
  Age: 78 Year
  Sex: Male

DRUGS (2)
  1. COUMADIN [Suspect]
     Dosage: VARIES  PO
     Route: 048
  2. LOVENOX [Suspect]
     Dosage: 1MG/KG  Q12  SQ

REACTIONS (3)
  - CARDIO-RESPIRATORY ARREST [None]
  - POST PROCEDURAL HAEMORRHAGE [None]
  - VENTRICULAR ARRHYTHMIA [None]
